FAERS Safety Report 21870971 (Version 1)
Quarter: 2023Q1

REPORT INFORMATION
  Report Type: Spontaneous
  Country: US (occurrence: US)
  Receive Date: 20230117
  Receipt Date: 20230117
  Transmission Date: 20230417
  Serious: Yes (Hospitalization)
  Sender: FDA-Public Use
  Company Number: US-drreddys-SPO/USA/23/0159715

PATIENT
  Age: 77 Year
  Sex: Male

DRUGS (10)
  1. LENALIDOMIDE [Suspect]
     Active Substance: LENALIDOMIDE
     Indication: Plasma cell myeloma
     Dosage: TAKE 1 CAPSULE BY MOUTH EVERY DAY FOR 21 DAYS ON THEN 7 DAYS OFF
     Route: 048
     Dates: start: 202212
  2. ACYCLOVIR [Concomitant]
     Active Substance: ACYCLOVIR
     Indication: Product used for unknown indication
  3. AMLODIPINE B TAB 10MG [Concomitant]
     Indication: Product used for unknown indication
  4. ASPIRIN TAB 325MG [Concomitant]
     Indication: Product used for unknown indication
  5. CALCIUM 600 TAB 600-200M [Concomitant]
     Indication: Product used for unknown indication
     Dosage: 600-200M
  6. DEXAMETHASONE [Concomitant]
     Active Substance: DEXAMETHASONE
     Indication: Product used for unknown indication
  7. DIPHENHIST CAP 25MG [Concomitant]
     Indication: Product used for unknown indication
  8. FERROUS SULF TBE 325(65 [Concomitant]
     Indication: Product used for unknown indication
     Dosage: 325 (65
  9. PROAIR HFA AER 108 (90 MC [Concomitant]
     Indication: Product used for unknown indication
     Dosage: AER 108 (90 MC
  10. SYMBICORT AER 160-4.5MCG [Concomitant]
     Indication: Product used for unknown indication

REACTIONS (1)
  - Infection [Recovered/Resolved]
